FAERS Safety Report 5598851-3 (Version None)
Quarter: 2008Q1

REPORT INFORMATION
  Report Type: 
  Country: None (occurrence: None)
  Receive Date: 20080122
  Receipt Date: 20080116
  Transmission Date: 20080703
  Serious: Yes (Death, Hospitalization)
  Sender: FDA-Public Use
  Company Number: HU-BRISTOL-MYERS SQUIBB COMPANY-13335609

PATIENT
  Age: 55 Year
  Sex: Male

DRUGS (6)
  1. CDDP [Suspect]
     Indication: METASTATIC GASTRIC CANCER
     Dosage: START DATE=8-DEC-2005. CYCLE 3 ON 3-FEB-2006
     Route: 041
     Dates: start: 20060302, end: 20060302
  2. S-1 [Suspect]
     Indication: METASTATIC GASTRIC CANCER
     Dosage: START DATE=8-DEC-2005. CYCLE 3 ON 3-FEB-2006
     Route: 048
     Dates: start: 20060302, end: 20060302
  3. BLOOD TRANSFUSION [Concomitant]
     Indication: ANAEMIA
     Route: 042
     Dates: start: 20060320, end: 20060324
  4. CLINDAMYCIN HCL [Concomitant]
     Indication: SKIN INFECTION
     Dosage: 1 DOSAGE FORM = 600/DAY (NO UNITS SPECIFIED).
     Route: 048
     Dates: start: 20051124, end: 20051129
  5. ZOLEDRONIC ACID [Concomitant]
     Indication: METASTASES TO BONE
     Route: 042
     Dates: start: 20051208, end: 20051208
  6. GRANISETRON [Concomitant]
     Indication: PROPHYLAXIS
     Route: 042
     Dates: start: 20051208, end: 20051212

REACTIONS (3)
  - HYPERTENSION [None]
  - MALIGNANT NEOPLASM PROGRESSION [None]
  - NAUSEA [None]
